FAERS Safety Report 4407674-X (Version None)
Quarter: 2004Q3

REPORT INFORMATION
  Report Type: 
  Country: None (occurrence: None)
  Receive Date: 20040721
  Receipt Date: 20040712
  Transmission Date: 20050211
  Serious: Yes (Death, Hospitalization)
  Sender: FDA-Public Use
  Company Number: 2004SE03958

PATIENT
  Sex: Female

DRUGS (8)
  1. SEROQUEL [Suspect]
     Indication: SCHIZOPHRENIA
     Dosage: 300 MG BID PO
     Route: 048
     Dates: start: 20040520, end: 20040617
  2. HALDOL [Concomitant]
  3. TEGRETOL [Concomitant]
  4. LYSANXIA [Concomitant]
  5. TRISEQUENS [Concomitant]
  6. ZOCOR [Concomitant]
  7. MOVICOL [Concomitant]
  8. VENORUTON [Concomitant]

REACTIONS (2)
  - ATRIOVENTRICULAR BLOCK [None]
  - CARDIAC ARREST [None]
